FAERS Safety Report 9263773 (Version 1)
Quarter: 2013Q2

REPORT INFORMATION
  Report Type: Spontaneous
  Country: US (occurrence: None)
  Receive Date: 20130429
  Receipt Date: 20130429
  Transmission Date: 20140414
  Serious: No
  Sender: FDA-Public Use
  Company Number: None

PATIENT
  Age: 49 Year
  Sex: Female
  Weight: 54.43 kg

DRUGS (1)
  1. SPIRONOLACTONE [Suspect]
     Route: 048
     Dates: start: 20040901, end: 20130402

REACTIONS (1)
  - Cough [None]
